FAERS Safety Report 16175730 (Version 2)
Quarter: 2019Q2

REPORT INFORMATION
  Report Type: Spontaneous
  Country: US (occurrence: US)
  Receive Date: 20190409
  Receipt Date: 20190411
  Transmission Date: 20190711
  Serious: Yes (Other)
  Sender: FDA-Public Use
  Company Number: US-PFIZER INC-2019151175

PATIENT
  Age: 62 Year
  Sex: Female
  Weight: 111 kg

DRUGS (35)
  1. ROSUVASTATIN. [Concomitant]
     Active Substance: ROSUVASTATIN
     Indication: BLOOD CHOLESTEROL INCREASED
     Dosage: UNK
     Dates: start: 201812, end: 201902
  2. FAMOTIDINE. [Concomitant]
     Active Substance: FAMOTIDINE
  3. CIPROFLOXACIN. [Concomitant]
     Active Substance: CIPROFLOXACIN
     Indication: BACTERIAL INFECTION
  4. ANASTROZOLE. [Concomitant]
     Active Substance: ANASTROZOLE
     Indication: BREAST CANCER
     Dosage: UNK
     Dates: start: 201202, end: 201711
  5. VITAMIN D [ERGOCALCIFEROL] [Concomitant]
     Active Substance: ERGOCALCIFEROL
     Dosage: UNK
     Dates: start: 2014
  6. NEXIUM [Suspect]
     Active Substance: ESOMEPRAZOLE MAGNESIUM
     Dosage: UNK
     Route: 048
     Dates: start: 2000, end: 2016
  7. PROTONIX [Suspect]
     Active Substance: PANTOPRAZOLE SODIUM
     Indication: GASTROOESOPHAGEAL REFLUX DISEASE
     Dosage: 40 MG, 2X/DAY
     Route: 048
     Dates: start: 2000, end: 2016
  8. PROAIR HFA [Concomitant]
     Active Substance: ALBUTEROL SULFATE
     Indication: BRONCHITIS
  9. ASPIRIN (E.C.) [Concomitant]
     Active Substance: ASPIRIN
     Indication: PROPHYLAXIS
     Dosage: LOW DOSE
     Dates: start: 2016
  10. RANITIDINE. [Concomitant]
     Active Substance: RANITIDINE
  11. ACYCLOVIR [ACICLOVIR] [Concomitant]
     Active Substance: ACYCLOVIR
     Indication: ORAL HERPES
  12. PROAIR HFA [Concomitant]
     Active Substance: ALBUTEROL SULFATE
     Indication: ASTHMA
     Dosage: UNK
     Dates: start: 2000
  13. PRILOSEC [Suspect]
     Active Substance: OMEPRAZOLE MAGNESIUM
     Indication: GASTROOESOPHAGEAL REFLUX DISEASE
     Route: 048
  14. OMEPRAZOLE. [Suspect]
     Active Substance: OMEPRAZOLE
     Indication: GASTROOESOPHAGEAL REFLUX DISEASE
     Dosage: UNK
     Route: 048
  15. PANTOPRAZOLE [Suspect]
     Active Substance: PANTOPRAZOLE
     Indication: GASTROOESOPHAGEAL REFLUX DISEASE
     Dosage: UNK
     Route: 048
  16. PREVACID 24 HR [Suspect]
     Active Substance: LANSOPRAZOLE
     Dosage: UNK
     Route: 048
     Dates: start: 2000, end: 2016
  17. VITAMIN D NOS [Concomitant]
     Active Substance: VITAMIN D NOS
     Indication: VITAMIN D ABNORMAL
     Dosage: UNK
     Dates: start: 2014
  18. ZANTAC 75 [Concomitant]
     Active Substance: RANITIDINE HYDROCHLORIDE
  19. ZANTAC [Concomitant]
     Active Substance: RANITIDINE HYDROCHLORIDE
  20. AMOXYCILLIN [Concomitant]
     Active Substance: AMOXICILLIN
     Indication: PHARYNGITIS STREPTOCOCCAL
  21. FUROSEMIDE. [Concomitant]
     Active Substance: FUROSEMIDE
     Indication: DIURETIC THERAPY
     Dosage: UNK
     Dates: start: 2010
  22. LANSOPRAZOLE. [Suspect]
     Active Substance: LANSOPRAZOLE
     Indication: GASTROOESOPHAGEAL REFLUX DISEASE
     Dosage: UNK
     Route: 048
  23. PREVACID [Suspect]
     Active Substance: LANSOPRAZOLE
     Indication: GASTROOESOPHAGEAL REFLUX DISEASE
     Dosage: UNK
     Route: 048
  24. ZEGERID [OMEPRAZOLE] [Suspect]
     Active Substance: OMEPRAZOLE
  25. ANASTRAZOLE [Concomitant]
     Active Substance: ANASTROZOLE
     Indication: BREAST CANCER
     Dosage: UNK
     Dates: start: 201202, end: 201711
  26. PROAIR HFA [Concomitant]
     Active Substance: ALBUTEROL SULFATE
     Indication: ASTHMA
     Dosage: UNK
     Dates: start: 2000
  27. PEPCID AC [Concomitant]
     Active Substance: FAMOTIDINE
  28. ADVAIR HFA [Concomitant]
     Active Substance: FLUTICASONE PROPIONATE\SALMETEROL XINAFOATE
     Indication: ASTHMA
     Dosage: UNK
     Dates: start: 2000, end: 2014
  29. PRILOSEC OTC [Suspect]
     Active Substance: OMEPRAZOLE MAGNESIUM
  30. DEXILANT [Suspect]
     Active Substance: DEXLANSOPRAZOLE
  31. ACIPHEX [Suspect]
     Active Substance: RABEPRAZOLE SODIUM
     Indication: GASTROOESOPHAGEAL REFLUX DISEASE
     Dosage: 20 MG, 2X/DAY
     Route: 048
  32. TYLENOL [Concomitant]
     Active Substance: ACETAMINOPHEN
     Indication: PAIN
     Dosage: UNK UNK, AS NEEDED
  33. PEPCID COMPLETE [Concomitant]
     Active Substance: CALCIUM CARBONATE\FAMOTIDINE\MAGNESIUM HYDROXIDE
  34. PENICILLIN [BENZYLPENICILLIN] [Concomitant]
     Active Substance: PENICILLIN G
  35. SPIRONOLACTONE. [Concomitant]
     Active Substance: SPIRONOLACTONE
     Dosage: UNK
     Dates: start: 2010, end: 2014

REACTIONS (3)
  - Renal failure [Not Recovered/Not Resolved]
  - Tubulointerstitial nephritis [Not Recovered/Not Resolved]
  - Chronic kidney disease [Not Recovered/Not Resolved]

NARRATIVE: CASE EVENT DATE: 2014
